FAERS Safety Report 9554100 (Version 2)
Quarter: 2013Q3

REPORT INFORMATION
  Report Type: Spontaneous
  Country: PT (occurrence: PT)
  Receive Date: 20130925
  Receipt Date: 20130925
  Transmission Date: 20140515
  Serious: Yes (Other)
  Sender: FDA-Public Use
  Company Number: PHHY2012PT024316

PATIENT
  Age: 66 Year
  Sex: Female

DRUGS (13)
  1. ETHAMBUTOL [Suspect]
     Indication: MYCOBACTERIUM AVIUM COMPLEX INFECTION
     Dosage: 400 MG, UNK
     Route: 048
  2. ETHAMBUTOL [Suspect]
     Dosage: 130 MG, UNK
  3. ETHAMBUTOL [Suspect]
     Dosage: 400 MG, UNK
  4. ETHAMBUTOL [Suspect]
     Dosage: 800 MG, UNK
  5. ETHAMBUTOL [Suspect]
     Dosage: 1200 MG, UNK
  6. RIFAMPICIN [Suspect]
     Indication: MYCOBACTERIUM AVIUM COMPLEX INFECTION
  7. CLARITHROMYCIN [Suspect]
     Indication: MYCOBACTERIUM AVIUM COMPLEX INFECTION
  8. STREPTOMYCIN [Concomitant]
     Indication: MYCOBACTERIUM AVIUM COMPLEX INFECTION
  9. LOSARTAN POTASSIUM/HYDROCHLOROTHIAZIDE [Concomitant]
     Dosage: 100/25 MG
  10. OMEPRAZOLE [Concomitant]
     Dosage: 20 MG, QD
  11. TICLOPIDINE [Concomitant]
     Dosage: 250 MG, QD
  12. SERTRALINE [Concomitant]
     Dosage: 50 MG, QD
  13. FLUTICASONE W/SALMETEROL [Concomitant]
     Dosage: 500/50 MCG BID

REACTIONS (9)
  - Optic neuropathy [Unknown]
  - Hypersensitivity [Recovered/Resolved]
  - Dyspnoea [Recovered/Resolved]
  - Erythema [Recovered/Resolved]
  - Angioedema [Recovered/Resolved]
  - Skin exfoliation [Recovered/Resolved]
  - Pruritus [Recovered/Resolved]
  - Rash maculo-papular [Recovered/Resolved]
  - Drug ineffective [Unknown]
